FAERS Safety Report 8573487-0 (Version None)
Quarter: 2012Q3

REPORT INFORMATION
  Report Type: 
  Country: None (occurrence: None)
  Receive Date: 20120806
  Receipt Date: 20120726
  Transmission Date: 20120928
  Serious: Yes (Other)
  Sender: FDA-Public Use
  Company Number: US-BAYER-2012-076097

PATIENT
  Age: 24 Year
  Sex: Female

DRUGS (1)
  1. MIRENA [Suspect]
     Indication: CONTRACEPTION
     Dosage: 20 MCG/24HR, CONT
     Route: 015
     Dates: start: 20080501, end: 20110101

REACTIONS (11)
  - PRESYNCOPE [None]
  - SCAR [None]
  - DERMAL CYST [None]
  - IMMUNOSUPPRESSION [None]
  - ALOPECIA [None]
  - FUNGAL INFECTION [None]
  - ANXIETY [None]
  - SUICIDAL IDEATION [None]
  - WEIGHT DECREASED [None]
  - VAGINITIS BACTERIAL [None]
  - ACNE [None]
